FAERS Safety Report 8245685 (Version 8)
Quarter: 2013Q1

REPORT INFORMATION
  Report Type: Spontaneous
  Country: JP (occurrence: JP)
  Receive Date: 20111115
  Receipt Date: 20130206
  Transmission Date: 20140127
  Serious: Yes (Hospitalization)
  Sender: FDA-Public Use
  Company Number: JP-GLAXOSMITHKLINE-B0761047A

PATIENT
  Age: 48 Year
  Sex: Female

DRUGS (19)
  1. LAMICTAL [Suspect]
     Indication: BIPOLAR I DISORDER
     Dosage: 25MG PER DAY
     Route: 048
     Dates: start: 20110917, end: 20110930
  2. LAMICTAL [Suspect]
     Indication: BIPOLAR I DISORDER
     Dosage: 50MG TWICE PER DAY
     Route: 048
     Dates: start: 20111001, end: 20111022
  3. LIMAS [Concomitant]
     Indication: BIPOLAR I DISORDER
     Dosage: 400MG THREE TIMES PER DAY
     Route: 048
  4. SILECE [Concomitant]
     Indication: BIPOLAR I DISORDER
     Dosage: 2MG PER DAY
     Route: 048
  5. AMOBAN [Concomitant]
     Indication: BIPOLAR I DISORDER
     Dosage: 2MG PER DAY
     Route: 048
  6. COLONEL [Concomitant]
     Indication: CONSTIPATION
     Dosage: 500MG THREE TIMES PER DAY
     Route: 048
  7. GASTER D [Concomitant]
     Indication: GASTRITIS
     Dosage: 10MG TWICE PER DAY
     Route: 048
  8. FLOMOX [Concomitant]
     Route: 048
  9. LOXONIN [Concomitant]
     Route: 048
  10. EMPYNASE [Concomitant]
     Route: 048
  11. LEVOTOMIN [Concomitant]
     Route: 065
  12. DEPAS [Concomitant]
     Route: 048
  13. LEXOTAN [Concomitant]
     Route: 048
  14. HERBESSER R [Concomitant]
     Route: 048
  15. BEZATOL SR [Concomitant]
     Route: 048
  16. BIOFERMIN [Concomitant]
     Route: 048
  17. GASMOTIN [Concomitant]
     Route: 048
  18. TAKEPRON [Concomitant]
     Route: 048
  19. FOLIAMIN [Concomitant]
     Route: 065

REACTIONS (23)
  - Toxic epidermal necrolysis [Recovering/Resolving]
  - Lichen planus [Recovered/Resolved]
  - Urticaria [Unknown]
  - Generalised erythema [Unknown]
  - Sinusitis [Unknown]
  - Oral disorder [Unknown]
  - Lip erosion [Unknown]
  - Rash maculo-papular [Unknown]
  - Blister [Unknown]
  - Skin erosion [Unknown]
  - Skin swelling [Unknown]
  - Pyrexia [Unknown]
  - Skin exfoliation [Unknown]
  - Erythema [Unknown]
  - Oral mucosal eruption [Recovering/Resolving]
  - Drug eruption [Recovering/Resolving]
  - Vaginal haemorrhage [Unknown]
  - Uterine leiomyoma [Unknown]
  - Nasal inflammation [Recovered/Resolved]
  - Stomatitis [Unknown]
  - Vaginal inflammation [Recovered/Resolved]
  - Eye inflammation [Unknown]
  - Inflammation [Recovering/Resolving]
